FAERS Safety Report 23128940 (Version 1)
Quarter: 2023Q4

REPORT INFORMATION
  Report Type: Report from Study
  Country: US (occurrence: US)
  Receive Date: 20231031
  Receipt Date: 20231031
  Transmission Date: 20240110
  Serious: Yes (Other)
  Sender: FDA-Public Use
  Company Number: US-002147023-NVSC2023US227936

PATIENT
  Sex: Male
  Weight: 102.06 kg

DRUGS (2)
  1. COSENTYX [Suspect]
     Active Substance: SECUKINUMAB
     Indication: Psoriasis
     Dosage: UNK
     Route: 065
  2. TRIAMCINOLONE [Suspect]
     Active Substance: TRIAMCINOLONE
     Indication: Psoriasis
     Dosage: UNK
     Route: 065

REACTIONS (10)
  - Skin cancer [Unknown]
  - Psoriasis [Unknown]
  - Skin exfoliation [Unknown]
  - Skin plaque [Unknown]
  - Skin lesion [Unknown]
  - Skin hyperpigmentation [Unknown]
  - Papule [Unknown]
  - Erythema [Unknown]
  - Pustule [Unknown]
  - Therapeutic product effect incomplete [Unknown]
